FAERS Safety Report 8837302 (Version 2)
Quarter: 2012Q4

REPORT INFORMATION
  Report Type: 
  Country: JP (occurrence: JP)
  Receive Date: 20121011
  Receipt Date: 20121105
  Transmission Date: 20130627
  Serious: Yes (Other)
  Sender: FDA-Public Use
  Company Number: JP-ROCHE-1143465

PATIENT
  Age: 65 Year
  Sex: Female

DRUGS (4)
  1. RIVOTRIL [Suspect]
     Indication: MANIA
     Dosage: Dosage is uncertain.
     Route: 048
  2. SODIUM VALPROATE [Suspect]
     Indication: MANIA
     Dosage: Dosage is uncertain.
     Route: 065
  3. OLANZAPINE [Suspect]
     Indication: MANIA
     Dosage: Dosage is uncertain.
     Route: 065
  4. LITHIUM CARBONATE [Suspect]
     Indication: MANIA
     Dosage: Dosage is uncertain.
     Route: 065

REACTIONS (2)
  - Altered state of consciousness [Recovered/Resolved]
  - Multi-organ failure [Recovered/Resolved]
